FAERS Safety Report 9291835 (Version 1)
Quarter: 2013Q2

REPORT INFORMATION
  Report Type: Spontaneous
  Country: DE (occurrence: DE)
  Receive Date: 20130516
  Receipt Date: 20130516
  Transmission Date: 20140414
  Serious: Yes (Hospitalization)
  Sender: FDA-Public Use
  Company Number: DE-AMGEN-DEUSP2013034176

PATIENT
  Age: 62 Year
  Sex: Female

DRUGS (5)
  1. ENBREL [Suspect]
     Indication: ANKYLOSING SPONDYLITIS
     Dosage: 50 MG, WEEKLY
     Dates: start: 20130410
  2. PREDNISOLON                        /00016201/ [Concomitant]
     Dosage: 6 MG, UNK
  3. OMEPRAZOLE [Concomitant]
     Dosage: UNK
  4. EUTHYROX [Concomitant]
     Dosage: 100 MG, 4 DAYS
  5. EUTHYROX [Concomitant]
     Dosage: 112 MG, 3 DAYS

REACTIONS (3)
  - Bone swelling [Unknown]
  - Erythema [Unknown]
  - Chest pain [Unknown]
